FAERS Safety Report 6760547-X (Version None)
Quarter: 2010Q2

REPORT INFORMATION
  Report Type: 
  Country: None (occurrence: None)
  Receive Date: 20100607
  Receipt Date: 20100607
  Transmission Date: 20101027
  Serious: Yes (Life-Threatening, Disabling)
  Sender: FDA-Public Use
  Company Number: None

PATIENT
  Sex: Female
  Weight: 43.0917 kg

DRUGS (6)
  1. CITALOPRAM HYDROBROMIDE [Suspect]
     Indication: AUTISM
     Dosage: 10 MG 1X PO
     Route: 048
     Dates: start: 20080101
  2. TENEX [Concomitant]
  3. RISPERDAL [Concomitant]
  4. ABILIFY [Concomitant]
  5. RITALIN [Concomitant]
  6. ADDERALL 10 [Concomitant]

REACTIONS (4)
  - AGGRESSION [None]
  - PRODUCT SUBSTITUTION ISSUE [None]
  - REGRESSIVE BEHAVIOUR [None]
  - SELF INJURIOUS BEHAVIOUR [None]
